FAERS Safety Report 11493104 (Version 1)
Quarter: 2015Q3

REPORT INFORMATION
  Report Type: Spontaneous
  Country: US (occurrence: None)
  Receive Date: 20150910
  Receipt Date: 20150910
  Transmission Date: 20151125
  Serious: Yes (Hospitalization)
  Sender: FDA-Public Use
  Company Number: None

PATIENT
  Age: 12 Year
  Sex: Male
  Weight: 75 kg

DRUGS (2)
  1. QUATEPIN [Concomitant]
  2. LAMOTRIGINE 25MG [Suspect]
     Active Substance: LAMOTRIGINE
     Indication: EPILEPSY
     Route: 048

REACTIONS (16)
  - Anxiety [None]
  - Photophobia [None]
  - Cerebral disorder [None]
  - Hearing impaired [None]
  - Disturbance in attention [None]
  - Drug ineffective [None]
  - Hallucination [None]
  - Dizziness [None]
  - Fatigue [None]
  - Balance disorder [None]
  - Tinnitus [None]
  - Headache [None]
  - Mood swings [None]
  - Paranoia [None]
  - Depression [None]
  - Confusional state [None]

NARRATIVE: CASE EVENT DATE: 20150910
